FAERS Safety Report 19201465 (Version 1)
Quarter: 2021Q2

REPORT INFORMATION
  Report Type: Spontaneous
  Country: DE (occurrence: DE)
  Receive Date: 20210430
  Receipt Date: 20210430
  Transmission Date: 20210717
  Serious: Yes (Hospitalization, Other)
  Sender: FDA-Public Use
  Company Number: NVSC2021DE092250

PATIENT
  Age: 27 Year
  Sex: Female

DRUGS (3)
  1. CARBAMAZEPIN 200 ? 1A?PHARMA [Suspect]
     Active Substance: CARBAMAZEPINE
     Dosage: 200 MG, QD
     Route: 065
     Dates: start: 20210313
  2. CARBAMAZEPIN 200 ? 1A?PHARMA [Suspect]
     Active Substance: CARBAMAZEPINE
     Dosage: 600 MG, QD (AB TAG 5 ERHALTUNGSDOSIS)
     Route: 065
     Dates: start: 202103
  3. CARBAMAZEPIN 200 ? 1A?PHARMA [Suspect]
     Active Substance: CARBAMAZEPINE
     Indication: TRIGEMINAL NEURALGIA
     Dosage: 400 MG, QD
     Route: 065
     Dates: start: 202103

REACTIONS (26)
  - Leukopenia [Unknown]
  - Eye pain [Unknown]
  - Chills [Unknown]
  - Nystagmus [Unknown]
  - Vision blurred [Unknown]
  - Oxygen saturation decreased [Unknown]
  - Agranulocytosis [Unknown]
  - Nausea [Unknown]
  - Pyrexia [Unknown]
  - Photophobia [Unknown]
  - Disturbance in attention [Unknown]
  - Lymphadenopathy [Unknown]
  - Rash maculo-papular [Unknown]
  - Eye movement disorder [Unknown]
  - Altered pitch perception [Unknown]
  - Dizziness [Unknown]
  - Somnolence [Unknown]
  - Altered state of consciousness [Unknown]
  - Transaminases increased [Unknown]
  - Fatigue [Unknown]
  - Tachycardia [Unknown]
  - Fatigue [Unknown]
  - Thrombocytopenia [Unknown]
  - Lymph node pain [Unknown]
  - Gastritis [Unknown]
  - Decreased appetite [Unknown]

NARRATIVE: CASE EVENT DATE: 202103
